FAERS Safety Report 9850820 (Version 2)
Quarter: 2014Q1

REPORT INFORMATION
  Report Type: Report from Study
  Country: US (occurrence: US)
  Receive Date: 20140128
  Receipt Date: 20140207
  Transmission Date: 20141002
  Serious: Yes (Hospitalization)
  Sender: FDA-Public Use
  Company Number: US-ACTELION-A-US2014-93954

PATIENT
  Age: 57 Year
  Sex: Male

DRUGS (2)
  1. TRACLEER [Suspect]
     Indication: PULMONARY ARTERIAL HYPERTENSION
     Dosage: UNK
     Route: 048
     Dates: start: 2011
  2. COUMADIN [Concomitant]

REACTIONS (3)
  - Thyroid disorder [Recovering/Resolving]
  - Bronchitis [Recovering/Resolving]
  - Oxygen saturation abnormal [Recovering/Resolving]
